FAERS Safety Report 23266477 (Version 8)
Quarter: 2025Q3

REPORT INFORMATION
  Report Type: Report from Study
  Country: US (occurrence: US)
  Receive Date: 20231206
  Receipt Date: 20250825
  Transmission Date: 20251021
  Serious: Yes (Disabling)
  Sender: INSMED
  Company Number: US-INSMED, INC.-2023-03835-US

PATIENT
  Sex: Female

DRUGS (1)
  1. ARIKAYCE [Suspect]
     Active Substance: AMIKACIN
     Indication: Mycobacterium avium complex infection
     Dosage: 590 MILLIGRAM, QD
     Route: 055
     Dates: start: 20221207, end: 2024

REACTIONS (10)
  - Disability [Unknown]
  - Memory impairment [Unknown]
  - Brain fog [Unknown]
  - Mental disorder [Not Recovered/Not Resolved]
  - Bronchitis [Unknown]
  - Illness [Not Recovered/Not Resolved]
  - Dyspnoea [Not Recovered/Not Resolved]
  - Insurance issue [Unknown]
  - Accidental underdose [Unknown]
  - Device issue [Unknown]
